FAERS Safety Report 4313301-2 (Version None)
Quarter: 2004Q1

REPORT INFORMATION
  Report Type: 
  Country: None (occurrence: None)
  Receive Date: 20040304
  Receipt Date: 20040302
  Transmission Date: 20041129
  Serious: Yes (Death)
  Sender: FDA-Public Use
  Company Number: 2004UW03562

PATIENT
  Age: 76 Year
  Sex: Male
  Weight: 77 kg

DRUGS (7)
  1. DIPRIVAN [Suspect]
     Indication: SEDATION
     Dates: start: 20040215, end: 20040219
  2. CALCIUM GLUCONATE [Concomitant]
  3. CIPROFLOXACIN [Concomitant]
  4. ZYVOX [Concomitant]
  5. TIENAM /SCH/ [Concomitant]
  6. LOSEC [Concomitant]
  7. NORADRENALINE [Concomitant]

REACTIONS (1)
  - RESPIRATORY FAILURE [None]
